FAERS Safety Report 8969012 (Version 1)
Quarter: 2012Q4

REPORT INFORMATION
  Report Type: 
  Country: US (occurrence: US)
  Receive Date: 20121218
  Receipt Date: 20121218
  Transmission Date: 20130627
  Serious: Yes (Other)
  Sender: FDA-Public Use
  Company Number: US-BRISTOL-MYERS SQUIBB COMPANY-16347346

PATIENT
  Age: 6 Year
  Sex: Male
  Weight: 23 kg

DRUGS (1)
  1. ABILIFY [Suspect]
     Dates: start: 201109

REACTIONS (2)
  - Dystonia [Recovered/Resolved]
  - Muscle twitching [Recovered/Resolved]
